FAERS Safety Report 8101173-X (Version None)
Quarter: 2012Q1

REPORT INFORMATION
  Report Type: 
  Country: None (occurrence: None)
  Receive Date: 20120129
  Receipt Date: 20111027
  Transmission Date: 20120608
  Serious: No
  Sender: FDA-Public Use
  Company Number: US-ABBOTT-11P-163-0863806-00

PATIENT
  Sex: Female

DRUGS (2)
  1. HUMIRA [Suspect]
     Indication: PSORIASIS
     Route: 058
     Dates: start: 20111001
  2. HUMIRA [Suspect]
     Dates: start: 20111006, end: 20111006

REACTIONS (3)
  - PAIN IN EXTREMITY [None]
  - MYALGIA [None]
  - INFLUENZA LIKE ILLNESS [None]
